FAERS Safety Report 9760265 (Version 1)
Quarter: 2013Q4

REPORT INFORMATION
  Report Type: Spontaneous
  Country: US (occurrence: US)
  Receive Date: 20131216
  Receipt Date: 20131216
  Transmission Date: 20140711
  Serious: No
  Sender: FDA-Public Use
  Company Number: US-GILEAD-2010-0028751

PATIENT
  Sex: Female
  Weight: 86.18 kg

DRUGS (12)
  1. LETAIRIS [Suspect]
     Indication: PULMONARY ARTERIAL HYPERTENSION
     Route: 048
     Dates: start: 20091228
  2. PREMPRO [Concomitant]
  3. TEKTURNA HCT [Concomitant]
  4. OMEPRAZOLE DR [Concomitant]
  5. HYDROXYCHLOROQUINE [Concomitant]
  6. METFORMIN HCL ER [Concomitant]
  7. DILTIAZEM ER [Concomitant]
  8. BENICAR [Concomitant]
  9. FLAX SEED [Concomitant]
  10. VITAMIN C [Concomitant]
  11. FISH OIL [Concomitant]
  12. VITAMIN D [Concomitant]

REACTIONS (1)
  - Flushing [Unknown]
